FAERS Safety Report 23877196 (Version 1)
Quarter: 2024Q2

REPORT INFORMATION
  Report Type: Spontaneous
  Country: US (occurrence: US)
  Receive Date: 20240521
  Receipt Date: 20240521
  Transmission Date: 20240716
  Serious: No
  Sender: FDA-Public Use
  Company Number: US-IPSEN Group, Research and Development-2024-09888

PATIENT
  Age: 75 Year
  Sex: Female
  Weight: 58 kg

DRUGS (1)
  1. TAZVERIK [Suspect]
     Active Substance: TAZEMETOSTAT HYDROBROMIDE
     Indication: Follicular lymphoma stage I
     Dosage: 600MG TWICE DAILY
     Route: 048

REACTIONS (2)
  - Pain in extremity [Not Recovered/Not Resolved]
  - Mass [Not Recovered/Not Resolved]

NARRATIVE: CASE EVENT DATE: 20240101
